FAERS Safety Report 16374622 (Version 1)
Quarter: 2019Q2

REPORT INFORMATION
  Report Type: Spontaneous
  Country: US (occurrence: US)
  Receive Date: 20190530
  Receipt Date: 20190530
  Transmission Date: 20190711
  Serious: No
  Sender: FDA-Public Use
  Company Number: US-009507513-1905USA013688

PATIENT
  Age: 17 Year
  Sex: Female
  Weight: 76.64 kg

DRUGS (1)
  1. NEXPLANON [Suspect]
     Active Substance: ETONOGESTREL
     Dosage: 1 DOSAGE FORM
     Route: 059
     Dates: start: 20190521, end: 20190521

REACTIONS (6)
  - Device deployment issue [Recovered/Resolved]
  - Wrong technique in product usage process [Unknown]
  - Complication of device insertion [Unknown]
  - Device difficult to use [Unknown]
  - Device expulsion [Recovered/Resolved]
  - No adverse event [Unknown]

NARRATIVE: CASE EVENT DATE: 20190521
